FAERS Safety Report 5070713-X (Version None)
Quarter: 2006Q3

REPORT INFORMATION
  Report Type: 
  Country: None (occurrence: None)
  Receive Date: 20060804
  Receipt Date: 20051012
  Transmission Date: 20061208
  Serious: No
  Sender: FDA-Public Use
  Company Number: US-GLAXOSMITHKLINE-A0577952A

PATIENT
  Age: 48 Year
  Sex: Male

DRUGS (1)
  1. NICORETTE (MINT) [Suspect]
     Indication: TOBACCO USER

REACTIONS (2)
  - MOUTH ULCERATION [None]
  - ORAL MUCOSAL ERUPTION [None]
